FAERS Safety Report 20440309 (Version 1)
Quarter: 2022Q1

REPORT INFORMATION
  Report Type: Spontaneous
  Country: US (occurrence: None)
  Receive Date: 20220207
  Receipt Date: 20220207
  Transmission Date: 20220424
  Serious: Yes (Hospitalization)
  Sender: FDA-Public Use
  Company Number: None

PATIENT
  Age: 75 Year
  Sex: Male
  Weight: 80.29 kg

DRUGS (2)
  1. APIXABAN [Suspect]
     Active Substance: APIXABAN
     Indication: Atrial fibrillation
     Dosage: FREQUENCY : DAILY;?
     Route: 048
     Dates: start: 20210901
  2. ASPIRIN 81MG [Suspect]
     Active Substance: ASPIRIN
     Indication: Stent placement
     Dosage: FREQUENCY : DAILY;?
     Route: 048
     Dates: start: 20010101

REACTIONS (1)
  - Anaemia [None]

NARRATIVE: CASE EVENT DATE: 20211214
